FAERS Safety Report 5514615-0 (Version None)
Quarter: 2007Q4

REPORT INFORMATION
  Report Type: 
  Country: None (occurrence: None)
  Receive Date: 20071113
  Receipt Date: 20070524
  Transmission Date: 20080405
  Serious: Yes (Other)
  Sender: FDA-Public Use
  Company Number: US-AVENTIS-200619770US

PATIENT
  Sex: Male
  Weight: 56.25 kg

DRUGS (7)
  1. LANTUS [Suspect]
     Dosage: DOSE: 19 QAM AND 17 QPM VIA PEN
     Route: 051
  2. LANTUS [Suspect]
     Dosage: DOSE: VIA VIAL AND SYRINGE
  3. OPTICLIK (INSULIN INJECTION PEN) [Suspect]
     Dates: start: 20050101, end: 20061127
  4. METFORMIN HCL [Concomitant]
     Indication: INSULIN RESISTANCE
     Route: 048
  5. CLARITIN [Concomitant]
     Indication: ASTHMA
  6. SINGULAIR [Concomitant]
     Indication: ASTHMA
  7. HUMALOG [Concomitant]
     Indication: DIABETES MELLITUS
     Dosage: DOSE: W/MEALS AND SNACKS
     Route: 058

REACTIONS (4)
  - CONVULSION [None]
  - DIABETES MELLITUS INADEQUATE CONTROL [None]
  - DRUG INEFFECTIVE [None]
  - GLYCOSYLATED HAEMOGLOBIN INCREASED [None]
